FAERS Safety Report 12352524 (Version 1)
Quarter: 2016Q2

REPORT INFORMATION
  Report Type: Spontaneous
  Country: PT (occurrence: PT)
  Receive Date: 20160510
  Receipt Date: 20160510
  Transmission Date: 20160815
  Serious: Yes (Hospitalization, Other)
  Sender: FDA-Public Use
  Company Number: PT-MYLANLABS-2016M1019371

PATIENT

DRUGS (11)
  1. NANDROLONE [Suspect]
     Active Substance: NANDROLONE
     Indication: MUSCLE BUILDING THERAPY
     Route: 065
  2. TRENBOLONE [Suspect]
     Active Substance: TRENBOLONE
     Indication: MUSCLE BUILDING THERAPY
     Route: 065
  3. TESTOSTERONE PROPIONATE. [Suspect]
     Active Substance: TESTOSTERONE PROPIONATE
     Indication: MUSCLE BUILDING THERAPY
     Route: 065
  4. METENOLONE [Suspect]
     Active Substance: METHENOLONE ENANTHATE
     Indication: MUSCLE BUILDING THERAPY
     Route: 065
  5. DROMOSTANOLONE [Suspect]
     Active Substance: DROMOSTANOLONE PROPIONATE
     Indication: MUSCLE BUILDING THERAPY
     Route: 065
  6. STANOZOLOL [Suspect]
     Active Substance: STANOZOLOL
     Indication: MUSCLE BUILDING THERAPY
     Route: 065
  7. TESTOSTERONE. [Suspect]
     Active Substance: TESTOSTERONE
     Indication: MUSCLE BUILDING THERAPY
     Route: 065
  8. MESTEROLONE [Suspect]
     Active Substance: MESTEROLONE
     Indication: MUSCLE BUILDING THERAPY
     Route: 065
  9. OXANDROLONE. [Suspect]
     Active Substance: OXANDROLONE
     Indication: MUSCLE BUILDING THERAPY
     Route: 065
  10. CLENBUTEROL [Interacting]
     Active Substance: CLENBUTEROL
     Indication: MUSCLE BUILDING THERAPY
     Route: 065
  11. SOMATROPIN [Interacting]
     Active Substance: SOMATROPIN
     Indication: MUSCLE BUILDING THERAPY
     Route: 065

REACTIONS (4)
  - Dressler^s syndrome [Recovered/Resolved]
  - Drug abuse [Recovered/Resolved]
  - Drug interaction [Recovered/Resolved]
  - Acute myocardial infarction [Recovered/Resolved]
